FAERS Safety Report 25189014 (Version 1)
Quarter: 2025Q2

REPORT INFORMATION
  Report Type: Spontaneous
  Country: US (occurrence: None)
  Receive Date: 20250410
  Receipt Date: 20250410
  Transmission Date: 20250717
  Serious: Yes (Death)
  Sender: FDA-CTU
  Company Number: None

PATIENT
  Age: 41 Year
  Sex: Female

DRUGS (11)
  1. EFAVIRENZ, EMTRICITABINE AND TENOFOVIR DISOPROXIL FUMARATE [Suspect]
     Active Substance: EFAVIRENZ\EMTRICITABINE\TENOFOVIR DISOPROXIL FUMARATE
     Indication: HIV infection
     Dosage: 1 DF DOSAGE FORM DAILY ORAL ?
     Route: 048
     Dates: start: 20221016, end: 20250403
  2. DOXYCYCLINE [Concomitant]
     Active Substance: DOXYCYCLINE
  3. Fentanyl 25 mcg [Concomitant]
  4. Lorazepam 2 mg/ml Drops [Concomitant]
  5. Mag-oxide 400 mg [Concomitant]
  6. Megestrol Acetate 40 mg [Concomitant]
  7. MELOXICAM [Concomitant]
     Active Substance: MELOXICAM
  8. METHOCARBAMOL [Concomitant]
     Active Substance: METHOCARBAMOL
  9. Morphine Sulfate 100 mg/5mL [Concomitant]
  10. NAPROXEN [Concomitant]
     Active Substance: NAPROXEN
  11. ONDANSETRON [Concomitant]
     Active Substance: ONDANSETRON

REACTIONS (1)
  - Death [None]

NARRATIVE: CASE EVENT DATE: 20250403
